FAERS Safety Report 9202258 (Version 1)
Quarter: 2013Q1

REPORT INFORMATION
  Report Type: Spontaneous
  Country: US (occurrence: None)
  Receive Date: 20130326
  Receipt Date: 20130326
  Transmission Date: 20140127
  Serious: Yes (Hospitalization)
  Sender: FDA-Public Use
  Company Number: PL13-18

PATIENT
  Age: 84 Year
  Sex: Male

DRUGS (1)
  1. NIACIN [Suspect]
     Indication: PERIPHERAL COLDNESS
     Route: 048
     Dates: start: 20130210, end: 20130210

REACTIONS (4)
  - Vomiting [None]
  - Loss of consciousness [None]
  - Hypotension [None]
  - Incorrect dose administered [None]
